FAERS Safety Report 6027149-4 (Version None)
Quarter: 2008Q4

REPORT INFORMATION
  Report Type: 
  Country: None (occurrence: None)
  Receive Date: 20081231
  Receipt Date: 20081231
  Transmission Date: 20090506
  Serious: Yes (Other)
  Sender: FDA-Public Use
  Company Number: None

PATIENT
  Age: 91 Year
  Sex: Female
  Weight: 77 kg

DRUGS (13)
  1. PROMETHAZINE [Suspect]
     Indication: NAUSEA
     Dosage: 25MG Q6H PRN IM
     Route: 030
     Dates: start: 20081226, end: 20081226
  2. LANTUS [Concomitant]
  3. LEVOTHYROXINE SODIUM [Concomitant]
  4. VASOTEC [Concomitant]
  5. ZANTAC [Concomitant]
  6. LESCOL [Concomitant]
  7. ALLEGRA [Concomitant]
  8. DETROL LA [Concomitant]
  9. ASPIRIN [Concomitant]
  10. BISACODYL [Concomitant]
  11. BENGAY [Concomitant]
  12. DARVOCET-N 100 [Concomitant]
  13. NYSTATIN [Concomitant]

REACTIONS (3)
  - DYSTONIA [None]
  - LETHARGY [None]
  - MENTAL STATUS CHANGES [None]
